FAERS Safety Report 12836609 (Version 1)
Quarter: 2016Q4

REPORT INFORMATION
  Report Type: Report from Study
  Country: JP (occurrence: JP)
  Receive Date: 20161011
  Receipt Date: 20161011
  Transmission Date: 20170207
  Serious: Yes (Hospitalization, Other)
  Sender: FDA-Public Use
  Company Number: JP-B.I. PHARMACEUTICALS,INC./RIDGEFIELD-2015-BI-49913BI

PATIENT
  Age: 46 Year
  Sex: Male
  Weight: 76.8 kg

DRUGS (11)
  1. BI 10773 [Suspect]
     Active Substance: EMPAGLIFLOZIN
     Route: 048
     Dates: start: 20150906, end: 20150910
  2. LASIX [Concomitant]
     Active Substance: FUROSEMIDE
     Indication: POLYURIA
     Dosage: FORMULATION: INJECTION
     Dates: start: 20150918, end: 20151010
  3. SOSEGON [Concomitant]
     Active Substance: PENTAZOCINE
     Indication: ANALGESIC THERAPY
     Dosage: FORMULATION: INJECTION
     Dates: start: 20150918, end: 20151010
  4. SOLYUGEN G [Concomitant]
     Indication: NUTRITIONAL SUPPLEMENTATION
     Dosage: FORMULATION: INJECTION
     Dates: start: 20150918, end: 20151010
  5. HEPARIN SODIUM LOCK [Concomitant]
     Indication: PROPHYLAXIS
     Dosage: DAILY DOSE: 100 UNITS/ML; SYRINGE
     Dates: start: 20150918, end: 20151010
  6. GASTER [Concomitant]
     Active Substance: FAMOTIDINE
     Indication: UPPER GASTROINTESTINAL HAEMORRHAGE
     Dates: start: 20150918, end: 20151010
  7. PENICILLIN [Concomitant]
     Active Substance: PENICILLIN
     Indication: INFECTION PROPHYLAXIS
     Dates: start: 20150918, end: 20151010
  8. CEFMETAZOLE [Concomitant]
     Active Substance: CEFMETAZOLE
     Indication: COLON CANCER
     Dates: start: 20150901, end: 20150905
  9. BI 10773 [Suspect]
     Active Substance: EMPAGLIFLOZIN
     Indication: TYPE 2 DIABETES MELLITUS
     Route: 048
     Dates: start: 20150615, end: 20150831
  10. CEFMETAZOLE [Concomitant]
     Active Substance: CEFMETAZOLE
     Dates: start: 20150910, end: 20151010
  11. SOLYUGEN F [Concomitant]
     Indication: NUTRITIONAL SUPPLEMENTATION
     Dosage: FORMULATION: INJECTION
     Dates: start: 20150918, end: 20151010

REACTIONS (1)
  - Colon cancer [Not Recovered/Not Resolved]

NARRATIVE: CASE EVENT DATE: 20150924
